FAERS Safety Report 9735737 (Version 2)
Quarter: 2013Q4

REPORT INFORMATION
  Report Type: Report from Study
  Country: DE (occurrence: DE)
  Receive Date: 20131206
  Receipt Date: 20131206
  Transmission Date: 20140711
  Serious: Yes (Hospitalization)
  Sender: FDA-Public Use
  Company Number: DE-ABBVIE-13P-062-1112499-00

PATIENT
  Sex: 0

DRUGS (2)
  1. HUMIRA [Suspect]
     Indication: MATERNAL EXPOSURE TIMING UNSPECIFIED
     Route: 064
  2. HUMIRA [Suspect]
     Route: 063

REACTIONS (5)
  - Premature baby [Recovering/Resolving]
  - Foetal exposure during pregnancy [Unknown]
  - Exposure during breast feeding [Recovered/Resolved]
  - Umbilical cord compression [Unknown]
  - Placental disorder [Unknown]
